FAERS Safety Report 9825189 (Version 1)
Quarter: 2013Q4

REPORT INFORMATION
  Report Type: Spontaneous
  Country: US (occurrence: None)
  Receive Date: 20131028
  Receipt Date: 20131028
  Transmission Date: 20140711
  Serious: No
  Sender: FDA-Public Use
  Company Number: 2013US001745

PATIENT
  Age: 73 Year
  Sex: Female
  Weight: 79 kg

DRUGS (12)
  1. ICLUSIG [Suspect]
     Indication: ACUTE LYMPHOCYTIC LEUKAEMIA
     Route: 048
     Dates: start: 20130208
  2. LEVAQUIN (LEVOFLOXACIN) [Concomitant]
  3. PROTONIX (PANTOPRAZOLE SODIUM SESQUILHYDRATE) [Concomitant]
  4. STOOL SOFTENER (DOCUSATE SODIUM) [Concomitant]
  5. METOPROLOL (METOPROLOL) [Concomitant]
  6. DILTIAZEM (DILTIAZEM) [Concomitant]
  7. ACETAMINOPHEN (ACETAMINOPHEN( [Concomitant]
  8. SYNTHROID (LEVOTHYROXINE SODIUM) [Concomitant]
  9. ATIVAN (LORAZEPAM) [Concomitant]
  10. ZOFRAN (ONDANSETRON) [Concomitant]
  11. HYDROCODONE (HYDROCODONE) [Concomitant]
  12. PROMETHAZINE (PROMETHAZINE) [Concomitant]

REACTIONS (3)
  - Headache [None]
  - Nausea [None]
  - Pyrexia [None]
